FAERS Safety Report 13030765 (Version 1)
Quarter: 2016Q4

REPORT INFORMATION
  Report Type: Spontaneous
  Country: JP (occurrence: JP)
  Receive Date: 20161215
  Receipt Date: 20161215
  Transmission Date: 20170207
  Serious: Yes (Other)
  Sender: FDA-Public Use
  Company Number: JP-OTSUKA-2016_027579

PATIENT
  Age: 59 Year
  Sex: Female

DRUGS (1)
  1. SAMSCA [Suspect]
     Active Substance: TOLVAPTAN
     Indication: CONGENITAL CYSTIC KIDNEY DISEASE
     Dosage: 60(UNIT UNKNOWN),QD
     Route: 048
     Dates: start: 20160701, end: 20161109

REACTIONS (1)
  - Hepatic function abnormal [Recovering/Resolving]
